FAERS Safety Report 10214141 (Version 2)
Quarter: 2014Q2

REPORT INFORMATION
  Report Type: Spontaneous
  Country: AR (occurrence: AR)
  Receive Date: 20140603
  Receipt Date: 20140611
  Transmission Date: 20141212
  Serious: Yes (Death, Other)
  Sender: FDA-Public Use
  Company Number: AR-PFIZER INC-2014148875

PATIENT
  Age: 65 Year
  Sex: Female

DRUGS (1)
  1. SUNITINIB MALATE [Suspect]
     Indication: METASTATIC RENAL CELL CARCINOMA
     Dosage: 50 MG, CYCLIC (6 WEEKS: 4 WEEKS ON, 2 WEEKS OFF)
     Route: 048

REACTIONS (4)
  - Haemorrhage [Fatal]
  - Hepatitis acute [Unknown]
  - Thrombocytopenia [Unknown]
  - Systolic dysfunction [Unknown]
